FAERS Safety Report 16564156 (Version 5)
Quarter: 2019Q3

REPORT INFORMATION
  Report Type: Spontaneous
  Country: TW (occurrence: TW)
  Receive Date: 20190712
  Receipt Date: 20190823
  Transmission Date: 20191004
  Serious: Yes (Death, Hospitalization)
  Sender: FDA-Public Use
  Company Number: TW-ABBVIE-19K-153-2846776-00

PATIENT
  Age: 70 Year
  Sex: Female
  Weight: 44 kg

DRUGS (10)
  1. COMPESOLON [Concomitant]
     Active Substance: PREDNISOLONE
     Indication: PRODUCT USED FOR UNKNOWN INDICATION
     Route: 048
     Dates: start: 20190514, end: 20190521
  2. CEXIME [Concomitant]
     Indication: PRODUCT USED FOR UNKNOWN INDICATION
     Route: 048
     Dates: start: 20190514, end: 20190521
  3. ACEMYCIN [Concomitant]
     Indication: PRODUCT USED FOR UNKNOWN INDICATION
     Dosage: STAT
     Dates: start: 20190514
  4. OMEZOL [Concomitant]
     Active Substance: OMEPRAZOLE
     Indication: PRODUCT USED FOR UNKNOWN INDICATION
     Route: 048
     Dates: start: 20190506, end: 20190520
  5. MOZAPRY [Concomitant]
     Indication: PRODUCT USED FOR UNKNOWN INDICATION
     Route: 048
     Dates: start: 20190506, end: 20190520
  6. DEPYRETIN [Concomitant]
     Active Substance: ACETAMINOPHEN
     Indication: PRODUCT USED FOR UNKNOWN INDICATION
     Route: 048
     Dates: start: 20190514, end: 20190521
  7. MAVIRET [Suspect]
     Active Substance: GLECAPREVIR\PIBRENTASVIR
     Indication: CHRONIC HEPATITIS C
     Route: 048
     Dates: start: 20190514, end: 20190518
  8. MAVIRET [Suspect]
     Active Substance: GLECAPREVIR\PIBRENTASVIR
     Route: 048
     Dates: start: 20190522, end: 20190528
  9. SENNOSIDE [Concomitant]
     Active Substance: SENNOSIDES
     Indication: PRODUCT USED FOR UNKNOWN INDICATION
     Dosage: HS
     Route: 048
  10. BENZONATATE. [Concomitant]
     Active Substance: BENZONATATE
     Indication: PRODUCT USED FOR UNKNOWN INDICATION
     Route: 048
     Dates: start: 20190514, end: 20190521

REACTIONS (10)
  - Dyspnoea [Fatal]
  - Infection susceptibility increased [Unknown]
  - Acute kidney injury [Fatal]
  - Cardio-respiratory arrest [Fatal]
  - Urosepsis [Fatal]
  - Renal impairment [Fatal]
  - Urinary tract infection [Fatal]
  - Respiratory tract infection [Unknown]
  - Septic shock [Fatal]
  - Hepatic failure [Fatal]

NARRATIVE: CASE EVENT DATE: 2019
